FAERS Safety Report 9351306 (Version 1)
Quarter: 2013Q2

REPORT INFORMATION
  Report Type: Spontaneous
  Country: GB (occurrence: GB)
  Receive Date: 20130617
  Receipt Date: 20130617
  Transmission Date: 20140414
  Serious: Yes (Other)
  Sender: FDA-Public Use
  Company Number: PHHY2013GB059209

PATIENT
  Age: 51 Year
  Sex: Female
  Weight: 58.96 kg

DRUGS (6)
  1. DOXYCYCLINE [Suspect]
     Indication: MEIBOMIAN GLAND DYSFUNCTION
     Dosage: 100MG FOR 4 WEEKS
     Route: 048
     Dates: start: 20130322
  2. DOXYCYCLINE [Suspect]
     Dosage: 50 MG, UNK
     Route: 048
     Dates: end: 20130530
  3. ESTRADOT [Concomitant]
     Dosage: 37.5 MG, UNK
  4. COD LIVER OIL [Concomitant]
  5. GLUCOSAMINE [Concomitant]
  6. HYALURONIC ACID [Concomitant]

REACTIONS (3)
  - Cardiac flutter [Recovered/Resolved]
  - Dizziness [Not Recovered/Not Resolved]
  - Blindness transient [Recovered/Resolved]
